FAERS Safety Report 9813167 (Version 1)
Quarter: 2014Q1

REPORT INFORMATION
  Report Type: Spontaneous
  Country: FR (occurrence: FR)
  Receive Date: 20140113
  Receipt Date: 20140113
  Transmission Date: 20141002
  Serious: Yes (Hospitalization)
  Sender: FDA-Public Use
  Company Number: FR-SA-2014SA001427

PATIENT
  Age: 62 Year
  Sex: Female

DRUGS (6)
  1. STILNOX [Suspect]
     Indication: PRODUCT USED FOR UNKNOWN INDICATION
     Route: 048
     Dates: end: 20120710
  2. ACECLOFENAC [Suspect]
     Indication: PAIN
     Route: 048
     Dates: end: 20120710
  3. KENZEN [Suspect]
     Indication: HYPERTENSION
     Route: 048
     Dates: end: 20120710
  4. TOPALGIC [Suspect]
     Indication: PAIN
     Route: 048
     Dates: end: 20120710
  5. LEXOMIL [Suspect]
     Indication: PRODUCT USED FOR UNKNOWN INDICATION
     Route: 048
     Dates: end: 20120710
  6. IXPRIM [Suspect]
     Indication: PAIN
     Route: 048
     Dates: end: 20120710

REACTIONS (4)
  - Bicytopenia [Recovered/Resolved]
  - Neutropenia [Recovered/Resolved]
  - Anaemia [Recovered/Resolved]
  - Asthenia [Recovered/Resolved]
